FAERS Safety Report 9569232 (Version 1)
Quarter: 2013Q3

REPORT INFORMATION
  Report Type: Spontaneous
  Country: US (occurrence: US)
  Receive Date: 20130930
  Receipt Date: 20130930
  Transmission Date: 20140515
  Serious: No
  Sender: FDA-Public Use
  Company Number: US-AMGEN-USASP2013059308

PATIENT
  Age: 53 Year
  Sex: Male

DRUGS (3)
  1. ENBREL [Suspect]
     Indication: PRODUCT USED FOR UNKNOWN INDICATION
     Dosage: 50 MG/ML, ONCE A WEEK
     Route: 058
  2. LISINOPRIL [Concomitant]
     Dosage: 10 MG, UNK
  3. SIMVASTATIN [Concomitant]
     Dosage: 20 MG, UNK

REACTIONS (1)
  - Injection site erythema [Unknown]
